FAERS Safety Report 18380145 (Version 4)
Quarter: 2020Q4

REPORT INFORMATION
  Report Type: Other
  Country: CA (occurrence: CA)
  Receive Date: 20201014
  Receipt Date: 20201127
  Transmission Date: 20210114
  Serious: Yes (Hospitalization, Other)
  Sender: FDA-Public Use
  Company Number: CA-INTERCEPT-PM2020002026

PATIENT
  Age: 36 Year
  Sex: Female
  Weight: 70 kg

DRUGS (7)
  1. DESVENLAFAXINE. [Concomitant]
     Active Substance: DESVENLAFAXINE
     Dosage: 50 MG, QD
     Route: 048
  2. UDCA [Concomitant]
     Active Substance: URSODIOL
     Dosage: UNK
     Dates: start: 20200928
  3. PANTOLOC                           /01263201/ [Concomitant]
     Active Substance: PANTOPRAZOLE SODIUM
     Dosage: 40 MG, BID
     Route: 048
  4. UDCA [Concomitant]
     Active Substance: URSODIOL
     Dosage: 500 MG, QID
     Route: 048
     Dates: end: 20200910
  5. ENTOCORT [Concomitant]
     Active Substance: BUDESONIDE
     Dosage: 9 MG, QD
     Route: 048
  6. UDCA [Concomitant]
     Active Substance: URSODIOL
     Dosage: 2000 MG, QD
     Route: 048
  7. OCALIVA [Suspect]
     Active Substance: OBETICHOLIC ACID
     Indication: PRIMARY BILIARY CHOLANGITIS
     Dosage: 5 MG, QD
     Route: 048
     Dates: start: 20200910, end: 20200928

REACTIONS (32)
  - Loss of consciousness [Recovered/Resolved]
  - Blood potassium abnormal [Unknown]
  - Decreased appetite [Unknown]
  - Urine alcohol test positive [Unknown]
  - Pain in extremity [Unknown]
  - Blood alkaline phosphatase increased [Unknown]
  - Memory impairment [Recovered/Resolved]
  - Anion gap abnormal [Unknown]
  - Blood phosphorus abnormal [Recovered/Resolved]
  - Nausea [Unknown]
  - Glycosuria [Unknown]
  - Aspartate aminotransferase abnormal [Unknown]
  - Analgesic drug level below therapeutic [Unknown]
  - Hypopnoea [Recovered/Resolved]
  - Lymphocyte count abnormal [Recovered/Resolved]
  - Unresponsive to stimuli [Recovered/Resolved]
  - Alanine aminotransferase abnormal [Unknown]
  - Chest pain [Unknown]
  - Vomiting [Unknown]
  - Hot flush [Unknown]
  - Stress [Unknown]
  - Neck pain [Unknown]
  - Gamma-glutamyltransferase abnormal [Unknown]
  - Blood ethanol increased [Unknown]
  - Respiratory rate decreased [Recovered/Resolved]
  - Therapy interrupted [Not Recovered/Not Resolved]
  - Body temperature abnormal [Unknown]
  - Hypertension [Unknown]
  - Haemoglobinuria [Unknown]
  - Malaise [Unknown]
  - Asthenia [Unknown]
  - Dizziness [Unknown]

NARRATIVE: CASE EVENT DATE: 2020
